FAERS Safety Report 8164107-8 (Version None)
Quarter: 2012Q1

REPORT INFORMATION
  Report Type: 
  Country: None (occurrence: None)
  Receive Date: 20120221
  Receipt Date: 20120207
  Transmission Date: 20120608
  Serious: Yes (Hospitalization)
  Sender: FDA-Public Use
  Company Number: 1000028507

PATIENT
  Age: 81 Year
  Sex: Male

DRUGS (13)
  1. RASAGILINE [Suspect]
     Indication: PARKINSON'S DISEASE
     Dates: start: 20091001
  2. FINASTERIDE (FINASTERIDE)(FINASTERIDE) [Concomitant]
  3. OMEPRAZOLE [Concomitant]
  4. STALEVO (STALEVO) (STALEVO) [Concomitant]
  5. DALTEPARIN (DALTEPARIN) (DALTEPARIN) [Concomitant]
  6. CALCIUM W/COLECALCIFEROL(CALCIUM, COLECALCIFEROL)(CALCIUM, COLECALCIFE [Concomitant]
  7. ALENDRONIC ACID (ALENDRONIC ACID)(ALENDRONIC ACID) [Concomitant]
  8. CITALOPRAM HYDROBROMIDE [Suspect]
  9. MIDODRINE (MIDODRINE) (MIDODRINE) [Concomitant]
  10. ROPINIROLE [Concomitant]
  11. PIPERACILLIN W/TAZOBACTAM(PIPERACILLIN, TAZOBACTAM)(PIPERACILLIN, TAZO [Concomitant]
  12. MOVICOL(MEROKEN NEW)(MEROKEN NEW) [Concomitant]
  13. PARACETAMOL (PARACETAMOL)(PARACETAMOL) [Concomitant]

REACTIONS (3)
  - SEROTONIN SYNDROME [None]
  - NEUROLEPTIC MALIGNANT SYNDROME [None]
  - DRUG WITHDRAWAL SYNDROME [None]
